FAERS Safety Report 9471593 (Version 2)
Quarter: 2013Q3

REPORT INFORMATION
  Report Type: Spontaneous
  Country: GB (occurrence: None)
  Receive Date: 20130819
  Receipt Date: 20130916
  Transmission Date: 20140515
  Serious: Yes (Other)
  Sender: FDA-Public Use
  Company Number: KAD201308-000994

PATIENT
  Age: 65 Year
  Sex: Male

DRUGS (3)
  1. RIBAVIRIN [Suspect]
     Indication: HEPATITIS C
     Route: 048
     Dates: start: 20121107
  2. PEGINTERFERON ALFA-2B (PEGINTERFERON ALFA-2B) [Suspect]
     Indication: HEPATITIS C
     Route: 058
     Dates: start: 20121107
  3. TELAPREVIR [Suspect]
     Indication: HEPATITIS C
     Dosage: THRICE DAILY
     Route: 048
     Dates: start: 20121107

REACTIONS (9)
  - Decreased appetite [None]
  - Depressed mood [None]
  - Dizziness [None]
  - Insomnia [None]
  - Lethargy [None]
  - Nausea [None]
  - Paraesthesia [None]
  - Rash [None]
  - Vomiting [None]
